FAERS Safety Report 19737121 (Version 1)
Quarter: 2021Q3

REPORT INFORMATION
  Report Type: Spontaneous
  Country: US (occurrence: US)
  Receive Date: 20210820
  Receipt Date: 20210820
  Transmission Date: 20211014
  Serious: Yes (Other)
  Sender: FDA-Public Use
  Company Number: None

PATIENT
  Age: 32 Year
  Sex: Female
  Weight: 72 kg

DRUGS (10)
  1. LOESTRIN NOS [Concomitant]
     Active Substance: ETHINYL ESTRADIOL\NORETHINDRONE ACETATE
  2. XYZAL [Concomitant]
     Active Substance: LEVOCETIRIZINE DIHYDROCHLORIDE
  3. IMITREX [Concomitant]
     Active Substance: SUMATRIPTAN SUCCINATE
  4. FLONASE [Concomitant]
     Active Substance: FLUTICASONE PROPIONATE
  5. VERAPAMIL [Concomitant]
     Active Substance: VERAPAMIL HYDROCHLORIDE
  6. CEFALY [Concomitant]
     Active Substance: DEVICE
  7. NURTEC ODT [Suspect]
     Active Substance: RIMEGEPANT SULFATE
     Indication: MIGRAINE PROPHYLAXIS
     Dosage: ?          QUANTITY:1 ODT;OTHER FREQUENCY:EVERY OTHER DAY;?
     Route: 060
     Dates: start: 20210813, end: 20210815
  8. PATADAY [Concomitant]
     Active Substance: OLOPATADINE HYDROCHLORIDE
  9. LIDPCAINE PATCHES [Concomitant]
  10. TUMS [Concomitant]
     Active Substance: CALCIUM CARBONATE

REACTIONS (5)
  - Therapy cessation [None]
  - Rash [None]
  - Urticaria [None]
  - Hypersensitivity [None]
  - Pruritus [None]

NARRATIVE: CASE EVENT DATE: 20210814
